FAERS Safety Report 23108847 (Version 2)
Quarter: 2024Q1

REPORT INFORMATION
  Report Type: Spontaneous
  Country: US (occurrence: US)
  Receive Date: 20231026
  Receipt Date: 20240226
  Transmission Date: 20240410
  Serious: No
  Sender: FDA-Public Use
  Company Number: US-SA-SAC20231020001505

PATIENT
  Age: 15 Year
  Sex: Male

DRUGS (3)
  1. DUPIXENT [Suspect]
     Active Substance: DUPILUMAB
     Indication: Eczema
     Dosage: 400 MG, 1X
     Route: 058
     Dates: start: 20230721, end: 20230721
  2. DUPIXENT [Suspect]
     Active Substance: DUPILUMAB
     Indication: Dermatitis atopic
     Dosage: 200 MG, QOW
     Route: 058
     Dates: start: 2023
  3. DUPIXENT [Suspect]
     Active Substance: DUPILUMAB
     Dosage: 300 MG, Q3W
     Route: 058
     Dates: start: 2023

REACTIONS (6)
  - Eyelid exfoliation [Unknown]
  - Dry skin [Unknown]
  - Rash erythematous [Unknown]
  - Erythema of eyelid [Unknown]
  - Eczema [Unknown]
  - Intentional product misuse [Unknown]

NARRATIVE: CASE EVENT DATE: 20230101
